FAERS Safety Report 5829499-0 (Version None)
Quarter: 2008Q3

REPORT INFORMATION
  Report Type: 
  Country: None (occurrence: None)
  Receive Date: 20080729
  Receipt Date: 20080714
  Transmission Date: 20090109
  Serious: Yes (Other)
  Sender: FDA-Public Use
  Company Number: 8034662

PATIENT
  Age: 5 Year
  Sex: Female

DRUGS (2)
  1. KEPPRA [Suspect]
     Indication: CONVULSION
     Dosage: 2.5 ML 2/D PO
     Route: 048
     Dates: start: 20080601
  2. ZITHROMAX [Suspect]
     Indication: UPPER RESPIRATORY TRACT INFECTION
     Dosage: 5 ML 1/D PO
     Route: 048
     Dates: start: 20080711

REACTIONS (1)
  - RESPIRATORY DEPRESSION [None]
